FAERS Safety Report 17104982 (Version 1)
Quarter: 2019Q4

REPORT INFORMATION
  Report Type: Report from Study
  Country: None (occurrence: US)
  Receive Date: 20191203
  Receipt Date: 20191203
  Transmission Date: 20200122
  Serious: Yes (Hospitalization)
  Sender: FDA-Public Use
  Company Number: US-ABBVIE-19K-163-2981483-00

PATIENT
  Age: 75 Year
  Sex: Female

DRUGS (3)
  1. HUMIRA [Suspect]
     Active Substance: ADALIMUMAB
     Indication: COLITIS ULCERATIVE
     Route: 058
     Dates: end: 201907
  2. BALSALAZID [Concomitant]
     Indication: COLITIS ULCERATIVE
  3. PREDNISONE. [Suspect]
     Active Substance: PREDNISONE
     Indication: PAIN
     Route: 065

REACTIONS (4)
  - Hypertension [Not Recovered/Not Resolved]
  - Blood cholesterol increased [Unknown]
  - Ulcer [Not Recovered/Not Resolved]
  - Pain [Unknown]

NARRATIVE: CASE EVENT DATE: 20190802
